FAERS Safety Report 21142675 (Version 1)
Quarter: 2022Q3

REPORT INFORMATION
  Report Type: Spontaneous
  Country: US (occurrence: US)
  Receive Date: 20220728
  Receipt Date: 20220728
  Transmission Date: 20221027
  Serious: Yes (Hospitalization, Other)
  Sender: FDA-Public Use
  Company Number: US-PFIZER INC-PV202200031706

PATIENT

DRUGS (2)
  1. PAXLOVID [Interacting]
     Active Substance: NIRMATRELVIR\RITONAVIR
     Indication: COVID-19 treatment
     Dosage: UNK
  2. TRIAZOLAM [Interacting]
     Active Substance: TRIAZOLAM
     Dosage: UNK, 3X/DAY FOR MANY YEARS

REACTIONS (3)
  - Labelled drug-drug interaction medication error [Unknown]
  - Respiratory depression [Unknown]
  - Contraindicated product administered [Unknown]
